FAERS Safety Report 18921111 (Version 1)
Quarter: 2021Q1

REPORT INFORMATION
  Report Type: Spontaneous
  Country: US (occurrence: US)
  Receive Date: 20210222
  Receipt Date: 20210222
  Transmission Date: 20210420
  Serious: No
  Sender: FDA-Public Use
  Company Number: US-TAKEDA-2021TUS010323

PATIENT
  Sex: Male
  Weight: 79 kg

DRUGS (2)
  1. FOSRENOL [Suspect]
     Active Substance: LANTHANUM CARBONATE
     Indication: BLOOD PHOSPHORUS
     Dosage: 1000 MILLIGRAM, TAKE WITH EVERY MEAL AND SNACK
     Route: 065
  2. INSULIN [Concomitant]
     Active Substance: INSULIN NOS
     Indication: DIABETES MELLITUS
     Route: 058

REACTIONS (4)
  - Expired product administered [Unknown]
  - Product dose omission issue [Unknown]
  - Product availability issue [Unknown]
  - No adverse event [Unknown]
